FAERS Safety Report 10021033 (Version 1)
Quarter: 2014Q1

REPORT INFORMATION
  Report Type: Spontaneous
  Country: US (occurrence: None)
  Receive Date: 20140318
  Receipt Date: 20140318
  Transmission Date: 20141002
  Serious: No
  Sender: FDA-Public Use
  Company Number: None

PATIENT
  Age: 22 Year
  Sex: Male
  Weight: 71.67 kg

DRUGS (1)
  1. OXY MAXIMUM ACTION FACE WASH [Suspect]
     Indication: ACNE
     Dates: start: 20140308, end: 20140309

REACTIONS (5)
  - Burning sensation [None]
  - Pain [None]
  - Eye pain [None]
  - Erythema [None]
  - Product quality issue [None]
